FAERS Safety Report 15613379 (Version 1)
Quarter: 2018Q4

REPORT INFORMATION
  Report Type: Spontaneous
  Country: GB (occurrence: GB)
  Receive Date: 20181113
  Receipt Date: 20181113
  Transmission Date: 20190205
  Serious: Yes (Other)
  Sender: FDA-Public Use
  Company Number: GB-PFIZER INC-2018458340

PATIENT
  Age: 60 Year
  Sex: Female

DRUGS (9)
  1. ZUCLOPENTHIXOL DECANOATE [Suspect]
     Active Substance: ZUCLOPENTHIXOL DECANOATE
     Indication: SCHIZOAFFECTIVE DISORDER
     Dosage: 400 MG, EVERY 2 WEEKS
     Route: 030
     Dates: start: 200810
  2. LAMOTRIGINE. [Concomitant]
     Active Substance: LAMOTRIGINE
     Dosage: 250 MG, 1X/DAY; 100MG IN THE DAY AND 150MG AT
  3. SERTRALINE HCL [Suspect]
     Active Substance: SERTRALINE HYDROCHLORIDE
     Dosage: 150 MG, 1X/DAY
     Route: 048
  4. NICOTINE. [Concomitant]
     Active Substance: NICOTINE
     Dosage: SPRAY/INHALATOR, AS NEEDED
  5. FOLIC ACID. [Concomitant]
     Active Substance: FOLIC ACID
     Dosage: 5 MG, 1X/DAY
  6. ATORVASTATIN [Concomitant]
     Active Substance: ATORVASTATIN
     Dosage: NIGHT, 20 MG, 1X/DAY
  7. THIAMINE. [Concomitant]
     Active Substance: THIAMINE
     Dosage: 100 MG, 1X/DAY
  8. VITAMIN B COMPOUND STRONG [Concomitant]
     Dosage: 3 DF, 1X/DAY
  9. PARACETAMOL [Concomitant]
     Active Substance: ACETAMINOPHEN
     Dosage: 1 G, AS NEEDED, FOUR TIMES DAILY

REACTIONS (5)
  - Peripheral swelling [Not Recovered/Not Resolved]
  - Alanine aminotransferase increased [Unknown]
  - Gamma-glutamyltransferase increased [Unknown]
  - Blood alkaline phosphatase increased [Unknown]
  - Joint swelling [Not Recovered/Not Resolved]

NARRATIVE: CASE EVENT DATE: 20180208
